FAERS Safety Report 13648277 (Version 23)
Quarter: 2021Q3

REPORT INFORMATION
  Report Type: Spontaneous
  Country: CA (occurrence: CA)
  Receive Date: 20170613
  Receipt Date: 20210925
  Transmission Date: 20211014
  Serious: Yes (Other)
  Sender: FDA-Public Use
  Company Number: CA-CELLTRION INC.-2017CA004746

PATIENT

DRUGS (26)
  1. INFLECTRA [Suspect]
     Active Substance: INFLIXIMAB-DYYB
     Dosage: 282 MG, EVERY 6 WEEKS
     Route: 042
     Dates: start: 20180802
  2. INFLECTRA [Suspect]
     Active Substance: INFLIXIMAB-DYYB
     Dosage: 470 MG, EVERY 6 WEEKS
     Route: 042
     Dates: start: 20210323
  3. INFLECTRA [Suspect]
     Active Substance: INFLIXIMAB-DYYB
     Dosage: 252 MG, EVERY 8 WEEKS
     Route: 042
     Dates: start: 20171128
  4. INFLECTRA [Suspect]
     Active Substance: INFLIXIMAB-DYYB
     Dosage: 282 MG, EVERY 7 WEEKS
     Route: 042
     Dates: start: 20180319, end: 20180508
  5. INFLECTRA [Suspect]
     Active Substance: INFLIXIMAB-DYYB
     Dosage: 470 MG, EVERY 6 WEEKS
     Route: 042
     Dates: start: 20210208
  6. INFLECTRA [Suspect]
     Active Substance: INFLIXIMAB-DYYB
     Dosage: 470 MG, EVERY 6 WEEKS
     Route: 042
     Dates: start: 20210615
  7. INFLECTRA [Suspect]
     Active Substance: INFLIXIMAB-DYYB
     Dosage: 300 MG, ON 0, 2, 6  WEEKS THEN EVERY 8 WEEKS FOR 12 MONTHS
     Route: 042
     Dates: start: 20170222, end: 20171128
  8. INFLECTRA [Suspect]
     Active Substance: INFLIXIMAB-DYYB
     Dosage: 470 MG, EVERY 6 WEEKS
     Route: 042
     Dates: start: 20210727
  9. INFLECTRA [Suspect]
     Active Substance: INFLIXIMAB-DYYB
     Dosage: 252 MG, EVERY 8 WEEKS
     Route: 042
     Dates: start: 20180123, end: 20180123
  10. INFLECTRA [Suspect]
     Active Substance: INFLIXIMAB-DYYB
     Dosage: UNK
  11. INFLECTRA [Suspect]
     Active Substance: INFLIXIMAB-DYYB
     Dosage: 282 MG, EVERY 8  WEEKS
     Route: 042
     Dates: start: 20180319, end: 20180508
  12. INFLECTRA [Suspect]
     Active Substance: INFLIXIMAB-DYYB
     Dosage: 282 MG, EVERY 6 WEEKS
     Route: 042
     Dates: start: 20180619
  13. INFLECTRA [Suspect]
     Active Substance: INFLIXIMAB-DYYB
     Dosage: 470 MG, EVERY 6 WEEKS
     Route: 042
     Dates: start: 20200602
  14. INFLECTRA [Suspect]
     Active Substance: INFLIXIMAB-DYYB
     Dosage: 470 MG, EVERY 6 WEEKS
     Route: 042
     Dates: start: 20200713
  15. INFLECTRA [Suspect]
     Active Substance: INFLIXIMAB-DYYB
     Dosage: 470 MG, EVERY 6 WEEKS
     Route: 042
     Dates: start: 20201005
  16. INFLECTRA [Suspect]
     Active Substance: INFLIXIMAB-DYYB
     Dosage: 470 MG, EVERY 6 WEEKS
     Route: 042
     Dates: start: 20201229
  17. INFLECTRA [Suspect]
     Active Substance: INFLIXIMAB-DYYB
     Dosage: 470 MG, EVERY 6 WEEKS
     Route: 042
     Dates: start: 20210914
  18. INFLECTRA [Suspect]
     Active Substance: INFLIXIMAB-DYYB
     Indication: RHEUMATOID ARTHRITIS
     Dosage: 300 MG, ON 0, 2, 6  WEEKS THEN EVERY 8 WEEKS FOR 12 MONTHS
     Route: 042
     Dates: start: 20170222, end: 20171003
  19. INFLECTRA [Suspect]
     Active Substance: INFLIXIMAB-DYYB
     Dosage: 252 MG, EVERY 8 WEEKS
     Route: 042
     Dates: start: 20180123, end: 20180123
  20. INFLECTRA [Suspect]
     Active Substance: INFLIXIMAB-DYYB
     Dosage: 470 MG, EVERY 6 WEEKS
     Route: 042
     Dates: start: 20191217
  21. INFLECTRA [Suspect]
     Active Substance: INFLIXIMAB-DYYB
     Dosage: 470 MG, EVERY 6 WEEKS
     Route: 042
     Dates: start: 20200128
  22. INFLECTRA [Suspect]
     Active Substance: INFLIXIMAB-DYYB
     Dosage: 470 MG, EVERY 6 WEEKS
     Route: 042
     Dates: start: 20200825
  23. INFLECTRA [Suspect]
     Active Substance: INFLIXIMAB-DYYB
     Dosage: 470 MG, EVERY 6 WEEKS
     Route: 042
     Dates: start: 20210507
  24. INFLECTRA [Suspect]
     Active Substance: INFLIXIMAB-DYYB
     Dosage: 282 MG, EVERY 7 WEEKS
     Route: 042
     Dates: start: 20180508, end: 20180508
  25. INFLECTRA [Suspect]
     Active Substance: INFLIXIMAB-DYYB
     Dosage: 470 MG, EVERY 6 WEEKS
     Route: 042
     Dates: start: 20180911
  26. INFLECTRA [Suspect]
     Active Substance: INFLIXIMAB-DYYB
     Dosage: 470 MG, EVERY 6 WEEKS
     Route: 042
     Dates: start: 20201117

REACTIONS (14)
  - Weight decreased [Unknown]
  - Condition aggravated [Unknown]
  - Blood pressure diastolic decreased [Not Recovered/Not Resolved]
  - Urinary tract infection [Unknown]
  - Pyrexia [Recovered/Resolved]
  - Diarrhoea [Recovering/Resolving]
  - Incorrect dose administered [Unknown]
  - Asthenia [Unknown]
  - Weight increased [Not Recovered/Not Resolved]
  - Diabetes mellitus [Unknown]
  - Therapeutic response shortened [Unknown]
  - Vomiting [Unknown]
  - Blood pressure diastolic increased [Unknown]
  - Blood pressure fluctuation [Unknown]

NARRATIVE: CASE EVENT DATE: 20170402
